FAERS Safety Report 6114724-1 (Version None)
Quarter: 2009Q1

REPORT INFORMATION
  Report Type: 
  Country: None (occurrence: None)
  Receive Date: 20090313
  Receipt Date: 20090306
  Transmission Date: 20090719
  Serious: Yes (Hospitalization)
  Sender: FDA-Public Use
  Company Number: PHHO2009FR03330

PATIENT
  Sex: Female
  Weight: 65.4 kg

DRUGS (2)
  1. ERL 080A ERL+TAB [Suspect]
     Indication: RENAL TRANSPLANT
     Dosage: 2160 MG PER DAY
     Route: 048
     Dates: start: 20071215
  2. NEORAL [Suspect]
     Indication: RENAL TRANSPLANT
     Dosage: 300 MG PER DAY
     Route: 048
     Dates: start: 20071216

REACTIONS (4)
  - ANAEMIA [None]
  - ASTHENIA [None]
  - HYPERCREATININAEMIA [None]
  - NEPHROPATHY TOXIC [None]
